FAERS Safety Report 14036924 (Version 2)
Quarter: 2017Q4

REPORT INFORMATION
  Report Type: Spontaneous
  Country: BE (occurrence: BE)
  Receive Date: 20171004
  Receipt Date: 20171031
  Transmission Date: 20180321
  Serious: No
  Sender: FDA-Public Use
  Company Number: BE-ASTRAZENECA-2017SF00171

PATIENT
  Age: 69 Year
  Sex: Female
  Weight: 63 kg

DRUGS (2)
  1. BRILIQUE [Suspect]
     Active Substance: TICAGRELOR
     Indication: ANTICOAGULANT THERAPY
     Route: 048
     Dates: start: 201503
  2. BRILIQUE [Suspect]
     Active Substance: TICAGRELOR
     Indication: ANTICOAGULANT THERAPY
     Route: 048
     Dates: start: 2014, end: 201503

REACTIONS (8)
  - Ear discomfort [Unknown]
  - Coronary ostial stenosis [Unknown]
  - Benign neoplasm of thyroid gland [Unknown]
  - Sensation of foreign body [Unknown]
  - Weight decreased [Unknown]
  - Haematoma [Unknown]
  - Ear swelling [Unknown]
  - Goitre [Unknown]

NARRATIVE: CASE EVENT DATE: 2017
